FAERS Safety Report 4275865-7 (Version None)
Quarter: 2004Q1

REPORT INFORMATION
  Report Type: 
  Country: None (occurrence: None)
  Receive Date: 20040121
  Receipt Date: 20030203
  Transmission Date: 20041129
  Serious: Yes (Hospitalization)
  Sender: FDA-Public Use
  Company Number: US-GLAXOSMITHKLINE-A0395031A

PATIENT
  Age: 69 Year
  Sex: Female

DRUGS (1)
  1. VALTREX [Suspect]
     Route: 048

REACTIONS (1)
  - RENAL FAILURE [None]
